FAERS Safety Report 12069331 (Version 1)
Quarter: 2016Q1

REPORT INFORMATION
  Report Type: Spontaneous
  Country: US (occurrence: US)
  Receive Date: 20160211
  Receipt Date: 20160211
  Transmission Date: 20160526
  Serious: Yes (Other)
  Sender: FDA-Public Use
  Company Number: US-NATCO PHARMA LIMITED-1047652

PATIENT
  Sex: Female

DRUGS (1)
  1. ONDANSETRON HYDROCHLORIDE TABLETS, 4 MG AND 8 MG [Suspect]
     Active Substance: ONDANSETRON HYDROCHLORIDE

REACTIONS (4)
  - Constipation [Unknown]
  - Bradycardia [Unknown]
  - Headache [Unknown]
  - Vertigo [Unknown]
